FAERS Safety Report 5806169-6 (Version None)
Quarter: 2008Q3

REPORT INFORMATION
  Report Type: 
  Country: None (occurrence: None)
  Receive Date: 20080710
  Receipt Date: 20080709
  Transmission Date: 20090109
  Serious: Yes (Hospitalization)
  Sender: FDA-Public Use
  Company Number: GB-BRISTOL-MYERS SQUIBB COMPANY-14234231

PATIENT
  Age: 62 Year
  Sex: Female

DRUGS (2)
  1. ABILIFY [Suspect]
     Indication: SCHIZOPHRENIA
     Dosage: DURATION - 2 YEARS;DOSE VALUE CHANGED IN JUL2008
     Route: 048
     Dates: start: 20060101
  2. PAROXETINE HCL [Concomitant]
     Indication: DEPRESSED MOOD
     Route: 048
     Dates: start: 20020101, end: 20080701

REACTIONS (1)
  - RENAL FAILURE [None]
